FAERS Safety Report 5401932-8 (Version None)
Quarter: 2007Q3

REPORT INFORMATION
  Report Type: 
  Country: None (occurrence: None)
  Receive Date: 20070726
  Receipt Date: 20070717
  Transmission Date: 20080115
  Serious: Yes (Other)
  Sender: FDA-Public Use
  Company Number: 2007BM000079

PATIENT
  Age: 5 Year
  Sex: Male

DRUGS (2)
  1. PREDNISOLONE [Suspect]
  2. ORAPRED [Suspect]

REACTIONS (1)
  - ANAPHYLACTIC REACTION [None]
